FAERS Safety Report 6944014-6 (Version None)
Quarter: 2010Q3

REPORT INFORMATION
  Report Type: 
  Country: None (occurrence: None)
  Receive Date: 20100827
  Receipt Date: 20100817
  Transmission Date: 20110219
  Serious: Yes (Disabling, Other)
  Sender: FDA-Public Use
  Company Number: GB-BIOGENIDEC-2010BI023818

PATIENT
  Age: 52 Year
  Sex: Female

DRUGS (7)
  1. TYSABRI [Suspect]
     Indication: MULTIPLE SCLEROSIS
     Route: 042
     Dates: start: 20090317, end: 20100412
  2. TYSABRI [Suspect]
     Route: 042
     Dates: start: 20100707
  3. HRT (NOS) [Concomitant]
  4. SUMATRIPTAN SUCCINATE [Concomitant]
  5. PROPRANOLOL [Concomitant]
  6. PREMARIN [Concomitant]
  7. CITALOPRAM HYDROBROMIDE [Concomitant]

REACTIONS (1)
  - MYOCLONUS [None]
